FAERS Safety Report 9554653 (Version 1)
Quarter: 2013Q3

REPORT INFORMATION
  Report Type: Spontaneous
  Country: IT (occurrence: IT)
  Receive Date: 20130925
  Receipt Date: 20130925
  Transmission Date: 20140515
  Serious: Yes (Other)
  Sender: FDA-Public Use
  Company Number: IT-PFIZER INC-2013273667

PATIENT
  Age: 67 Year
  Sex: Male

DRUGS (2)
  1. PANTORC [Suspect]
     Indication: SCIATICA
     Dosage: UNK
     Route: 065
     Dates: start: 2010
  2. ORUDIS [Suspect]
     Indication: SCIATICA
     Dosage: UNK
     Route: 065
     Dates: start: 2010

REACTIONS (5)
  - Eye haemorrhage [Recovering/Resolving]
  - Vitreous disorder [Recovering/Resolving]
  - Dry eye [Recovering/Resolving]
  - Vision blurred [Recovering/Resolving]
  - Off label use [Unknown]
